FAERS Safety Report 5012478-3 (Version None)
Quarter: 2006Q2

REPORT INFORMATION
  Report Type: 
  Country: None (occurrence: None)
  Receive Date: 20060410
  Receipt Date: 20051229
  Transmission Date: 20061013
  Serious: Yes (Death)
  Sender: FDA-Public Use
  Company Number: 05P-163-0320838-00

PATIENT
  Age: 45 Year
  Sex: Female

DRUGS (4)
  1. DEPAKOTE [Suspect]
     Indication: BIPOLAR DISORDER
     Dosage: 1500 MG, 1 IN 1 D, PER ORAL
     Route: 048
     Dates: start: 20050201, end: 20051224
  2. LAMOTRIGINE [Concomitant]
  3. LEXAPRO [Concomitant]
  4. TRIAZOLE [Concomitant]

REACTIONS (1)
  - DEATH [None]
